FAERS Safety Report 5023079-5 (Version None)
Quarter: 2006Q2

REPORT INFORMATION
  Report Type: 
  Country: None (occurrence: None)
  Receive Date: 20060428
  Receipt Date: 20051111
  Transmission Date: 20061013
  Serious: Yes (Other)
  Sender: FDA-Public Use
  Company Number: 2005115964

PATIENT
  Age: 15 Year
  Sex: Male
  Weight: 99.7913 kg

DRUGS (2)
  1. BENADRYL [Suspect]
     Indication: ARTHROPOD STING
     Dosage: 1 (4 OUNCE) BOTTLE ONCE, ORAL
     Route: 048
     Dates: start: 20050916, end: 20050916
  2. ATENOLOL [Concomitant]

REACTIONS (2)
  - MEDICATION ERROR [None]
  - SOMNOLENCE [None]
